FAERS Safety Report 23883615 (Version 3)
Quarter: 2025Q1

REPORT INFORMATION
  Report Type: Spontaneous
  Country: JP (occurrence: JP)
  Receive Date: 20240522
  Receipt Date: 20250113
  Transmission Date: 20250408
  Serious: Yes (Death, Other)
  Sender: ALEXION PHARMACEUTICALS
  Company Number: 2024A118326

PATIENT
  Age: 51 Year
  Weight: 83 kg

DRUGS (12)
  1. IMFINZI [Suspect]
     Active Substance: DURVALUMAB
     Indication: Bile duct cancer
  2. IMFINZI [Suspect]
     Active Substance: DURVALUMAB
     Route: 041
  3. IMFINZI [Suspect]
     Active Substance: DURVALUMAB
  4. IMFINZI [Suspect]
     Active Substance: DURVALUMAB
     Route: 041
  5. GEMCITABINE HYDROCHLORIDE [Suspect]
     Active Substance: GEMCITABINE HYDROCHLORIDE
     Indication: Bile duct cancer
     Dosage: 1600 MILLIGRAM, Q3W
     Route: 065
  6. GEMCITABINE HYDROCHLORIDE [Suspect]
     Active Substance: GEMCITABINE HYDROCHLORIDE
     Dosage: 1600 MILLIGRAM, Q3W
     Route: 065
  7. GEMCITABINE HYDROCHLORIDE [Suspect]
     Active Substance: GEMCITABINE HYDROCHLORIDE
     Route: 065
  8. GEMCITABINE HYDROCHLORIDE [Suspect]
     Active Substance: GEMCITABINE HYDROCHLORIDE
     Route: 065
  9. CISPLATIN [Suspect]
     Active Substance: CISPLATIN
     Indication: Bile duct cancer
     Dosage: 40 MILLIGRAM, Q3W
     Route: 065
  10. CISPLATIN [Suspect]
     Active Substance: CISPLATIN
     Dosage: 40 MILLIGRAM, Q3W
     Route: 065
  11. CISPLATIN [Suspect]
     Active Substance: CISPLATIN
     Dosage: 50 MILLIGRAM, Q3W
     Route: 065
  12. CISPLATIN [Suspect]
     Active Substance: CISPLATIN
     Dosage: 50 MILLIGRAM, Q3W
     Route: 065

REACTIONS (3)
  - Malignant neoplasm progression [Fatal]
  - Anaemia [Recovering/Resolving]
  - Proteinuria [Recovered/Resolved]
